FAERS Safety Report 14877049 (Version 3)
Quarter: 2018Q2

REPORT INFORMATION
  Report Type: Spontaneous
  Country: DE (occurrence: DE)
  Receive Date: 20180510
  Receipt Date: 20180530
  Transmission Date: 20180711
  Serious: Yes (Other)
  Sender: FDA-Public Use
  Company Number: DE-PFIZER INC-2018187326

PATIENT
  Sex: Female

DRUGS (9)
  1. FOLIC ACID. [Interacting]
     Active Substance: FOLIC ACID
     Indication: NONINFECTIVE ENCEPHALITIS
     Dosage: UNK
     Dates: start: 201712
  2. DEKRISTOL [Interacting]
     Active Substance: CHOLECALCIFEROL
     Indication: NONINFECTIVE ENCEPHALITIS
     Dosage: UNK
     Dates: start: 201712
  3. METHOTREXATE SODIUM. [Suspect]
     Active Substance: METHOTREXATE SODIUM
     Indication: NONINFECTIVE ENCEPHALITIS
     Dosage: UNK
     Dates: start: 201712
  4. L-THYROXIN [Interacting]
     Active Substance: LEVOTHYROXINE SODIUM
     Indication: THYROID OPERATION
     Dosage: UNK
     Dates: start: 1999
  5. MAGNESIUM [Interacting]
     Active Substance: MAGNESIUM
     Indication: NONINFECTIVE ENCEPHALITIS
     Dosage: UNK
     Dates: start: 201712
  6. LEVETIRACETAM. [Interacting]
     Active Substance: LEVETIRACETAM
     Indication: EPILEPSY
     Dosage: UNK
     Route: 048
     Dates: start: 201803
  7. MAXIM (DIENOGEST\ETHINYL ESTRADIOL) [Interacting]
     Active Substance: DIENOGEST\ETHINYL ESTRADIOL
     Dosage: UNK
     Route: 048
     Dates: start: 2012
  8. PREDNISOLONE. [Interacting]
     Active Substance: PREDNISOLONE
     Indication: NONINFECTIVE ENCEPHALITIS
     Dosage: UNK
     Dates: start: 201712
  9. RANITIDIN [Interacting]
     Active Substance: RANITIDINE HYDROCHLORIDE
     Indication: NONINFECTIVE ENCEPHALITIS
     Dosage: UNK
     Dates: start: 201712

REACTIONS (5)
  - Epilepsy [Unknown]
  - Drug interaction [Unknown]
  - Epilepsy [None]
  - Noninfective encephalitis [Unknown]
  - Noninfective encephalitis [None]

NARRATIVE: CASE EVENT DATE: 201712
